FAERS Safety Report 7688035-7 (Version None)
Quarter: 2011Q3

REPORT INFORMATION
  Report Type: 
  Country: None (occurrence: None)
  Receive Date: 20110817
  Receipt Date: 20110815
  Transmission Date: 20111222
  Serious: No
  Sender: FDA-Public Use
  Company Number: US-PFIZER INC-2011187373

PATIENT
  Sex: Female
  Weight: 50.3 kg

DRUGS (2)
  1. FOSAMAX [Concomitant]
     Dosage: UNK
  2. PREMPRO [Suspect]
     Indication: MENOPAUSE
     Dosage: 0.3/1.5 MG, 1X/DAY
     Route: 048

REACTIONS (3)
  - MUSCULOSKELETAL STIFFNESS [None]
  - BACK PAIN [None]
  - JOINT CREPITATION [None]
